FAERS Safety Report 19824036 (Version 1)
Quarter: 2021Q3

REPORT INFORMATION
  Report Type: Spontaneous
  Country: JP (occurrence: JP)
  Receive Date: 20210913
  Receipt Date: 20210913
  Transmission Date: 20211014
  Serious: Yes (Other)
  Sender: FDA-Public Use
  Company Number: JP-SA-2021SA298973

PATIENT
  Age: 81 Year

DRUGS (1)
  1. ELPLAT [Suspect]
     Active Substance: OXALIPLATIN
     Dosage: INJECTION

REACTIONS (1)
  - Neuropathy peripheral [Not Recovered/Not Resolved]
